FAERS Safety Report 6879244-5 (Version None)
Quarter: 2010Q3

REPORT INFORMATION
  Report Type: 
  Country: None (occurrence: None)
  Receive Date: 20100728
  Receipt Date: 20100212
  Transmission Date: 20110219
  Serious: No
  Sender: FDA-Public Use
  Company Number: US-ABBOTT-10P-163-0621983-00

PATIENT
  Sex: Female
  Weight: 65.83 kg

DRUGS (8)
  1. SYNTHROID [Suspect]
     Indication: HYPOTHYROIDISM
     Route: 048
     Dates: start: 20100116
  2. PRILOSEC [Concomitant]
     Indication: PRODUCT USED FOR UNKNOWN INDICATION
  3. CALCIUM [Concomitant]
     Indication: PRODUCT USED FOR UNKNOWN INDICATION
  4. MAGNESIUM [Concomitant]
     Indication: PRODUCT USED FOR UNKNOWN INDICATION
  5. VITAMIN E [Concomitant]
     Indication: PRODUCT USED FOR UNKNOWN INDICATION
  6. CHOLINE VITAMIN [Concomitant]
     Indication: PRODUCT USED FOR UNKNOWN INDICATION
  7. EFA VITAMIN [Concomitant]
     Indication: PRODUCT USED FOR UNKNOWN INDICATION
  8. MANY OTHER UNKNOWN VITAMINS [Concomitant]
     Indication: PRODUCT USED FOR UNKNOWN INDICATION

REACTIONS (1)
  - ABDOMINAL DISTENSION [None]
